FAERS Safety Report 7022724-2 (Version None)
Quarter: 2010Q3

REPORT INFORMATION
  Report Type: 
  Country: None (occurrence: None)
  Receive Date: 20100916
  Receipt Date: 20100608
  Transmission Date: 20110219
  Serious: No
  Sender: FDA-Public Use
  Company Number: DKLU1062765

PATIENT
  Age: 7 Year
  Sex: Female

DRUGS (1)
  1. SABRIL [Suspect]
     Indication: CONVULSION
     Dosage: 500 MG MILLIGRAM(S), AM, ORAL
     Route: 048
     Dates: start: 20100201

REACTIONS (1)
  - VISUAL FIELD DEFECT [None]
